FAERS Safety Report 7338536-6 (Version None)
Quarter: 2011Q1

REPORT INFORMATION
  Report Type: 
  Country: None (occurrence: None)
  Receive Date: 20110308
  Receipt Date: 20110303
  Transmission Date: 20110831
  Serious: Yes (Hospitalization)
  Sender: FDA-Public Use
  Company Number: JP-PFIZER INC-2011047381

PATIENT
  Age: 67 Year
  Sex: Female
  Weight: 68 kg

DRUGS (5)
  1. URSO 250 [Concomitant]
     Indication: HEPATITIS C
     Dosage: 100 MG/DAY
     Route: 048
  2. DIOVAN [Concomitant]
     Indication: HYPERTENSION
     Dosage: 40 MG/DAY
     Route: 048
     Dates: start: 20110212
  3. GASTER [Concomitant]
     Indication: NAUSEA
     Dosage: 20 MG/DAY
     Route: 048
     Dates: start: 20110212
  4. AMPICILLIN SODIUM AND SULBACTAM SODIUM [Suspect]
     Dosage: 3 G, 2X/DAY
     Route: 041
     Dates: start: 20110204, end: 20110211
  5. MUCOSTA [Concomitant]
     Indication: NAUSEA
     Dosage: 100 MG/DAY
     Route: 048

REACTIONS (1)
  - PNEUMONIA [None]
